FAERS Safety Report 4688536-X (Version None)
Quarter: 2005Q2

REPORT INFORMATION
  Report Type: 
  Country: None (occurrence: None)
  Receive Date: 20050311
  Receipt Date: 20050311
  Transmission Date: 20051028
  Serious: Yes (Other)
  Sender: FDA-Public Use
  Company Number: None

PATIENT
  Age: 61 Year
  Sex: Female

DRUGS (3)
  1. BUMETADINE 1MG [Suspect]
     Indication: FLUID RETENTION
     Dosage: 1MG ONE PO DAILY
     Route: 048
     Dates: start: 20021002
  2. BUMETADINE 1MG [Suspect]
     Indication: FLUID RETENTION
     Dosage: 1MG ONE PO DAILY
     Route: 048
     Dates: start: 20030523
  3. BUMETADINE 1MG [Suspect]
     Indication: FLUID RETENTION
     Dosage: 1MG ONE PO DAILY
     Route: 048
     Dates: start: 20030723

REACTIONS (2)
  - DRUG INEFFECTIVE [None]
  - THERAPEUTIC RESPONSE UNEXPECTED WITH DRUG SUBSTITUTION [None]
